FAERS Safety Report 21472403 (Version 3)
Quarter: 2022Q4

REPORT INFORMATION
  Report Type: Spontaneous
  Country: SI (occurrence: None)
  Receive Date: 20221018
  Receipt Date: 20221123
  Transmission Date: 20230113
  Serious: Yes (Hospitalization)
  Sender: FDA-Public Use
  Company Number: 2022A346990

PATIENT
  Sex: Male

DRUGS (6)
  1. EVUSHELD [Suspect]
     Active Substance: CILGAVIMAB\TIXAGEVIMAB
     Route: 030
  2. IMBRUVICA [Concomitant]
     Active Substance: IBRUTINIB
     Dosage: 420 MG ; ORAL ; FROM BEFORE (2021) ; STILL TAKING IT
     Route: 048
  3. PERINDOPRIL [Concomitant]
     Active Substance: PERINDOPRIL
     Dosage: 4 MG ; ORAL ; FROM BEFORE (2021) ; STILL TAKING IT
     Route: 048
  4. LACIDIPINE [Concomitant]
     Active Substance: LACIDIPINE
     Dosage: 6 MG ; ORAL ; FROM BEFORE (2021) ; STILL TAKING IT
     Route: 048
  5. PROPRANOLOL [Concomitant]
     Active Substance: PROPRANOLOL HYDROCHLORIDE
     Dosage: 80 MG ; ORAL ; FROM BEFORE (2021) ; STILL TAKING IT
     Route: 048
  6. NALOXONE HYDROCHLORIDE\OXYCODONE HYDROCHLORIDE [Concomitant]
     Active Substance: NALOXONE HYDROCHLORIDE\OXYCODONE HYDROCHLORIDE
     Dosage: 10/5 MG FROM BEFORE (2021) ; STILL TAKING IT
     Route: 048

REACTIONS (1)
  - COVID-19 [Recovered/Resolved]
